FAERS Safety Report 4864033-3 (Version None)
Quarter: 2005Q4

REPORT INFORMATION
  Report Type: 
  Country: None (occurrence: None)
  Receive Date: 20051219
  Receipt Date: 20051205
  Transmission Date: 20060501
  Serious: Yes (Hospitalization)
  Sender: FDA-Public Use
  Company Number: 2005165144

PATIENT
  Age: 39 Year
  Sex: Female

DRUGS (1)
  1. ARTHROTEC [Suspect]
     Indication: ILL-DEFINED DISORDER
     Dosage: ORAL
     Route: 048

REACTIONS (7)
  - ABDOMINAL PAIN UPPER [None]
  - ANGIONEUROTIC OEDEMA [None]
  - ARTHRALGIA [None]
  - DIARRHOEA [None]
  - MYALGIA [None]
  - OEDEMA PERIPHERAL [None]
  - SERUM SICKNESS [None]
